FAERS Safety Report 9505789 (Version 1)
Quarter: 2013Q1

REPORT INFORMATION
  Report Type: Spontaneous
  Country: US (occurrence: None)
  Receive Date: 20130225
  Receipt Date: 20130225
  Transmission Date: 20140127
  Serious: Yes (Hospitalization)
  Sender: FDA-Public Use
  Company Number: 2012-656

PATIENT
  Age: 48 Year
  Sex: Male

DRUGS (1)
  1. PRIALT [Suspect]
     Dosage: ONCE AN HR
     Route: 037

REACTIONS (6)
  - Overdose [None]
  - Nausea [None]
  - Somnolence [None]
  - Confusional state [None]
  - Gait disturbance [None]
  - Dysuria [None]
